FAERS Safety Report 15117485 (Version 1)
Quarter: 2018Q3

REPORT INFORMATION
  Report Type: Spontaneous
  Country: FR (occurrence: FR)
  Receive Date: 20180706
  Receipt Date: 20180706
  Transmission Date: 20181010
  Serious: Yes (Death, Hospitalization, Other)
  Sender: FDA-Public Use
  Company Number: PHHY2018FR039596

PATIENT
  Age: 74 Year
  Sex: Male

DRUGS (1)
  1. ENTRESTO [Suspect]
     Active Substance: SACUBITRIL\VALSARTAN
     Indication: CARDIAC FAILURE
     Dosage: 2 DF, QD
     Route: 065

REACTIONS (6)
  - Inappropriate schedule of drug administration [Unknown]
  - Renal failure [Fatal]
  - Hyperkalaemia [Unknown]
  - General physical health deterioration [Unknown]
  - Hypokalaemia [Unknown]
  - Cardiac failure [Fatal]
